FAERS Safety Report 7343803-6 (Version None)
Quarter: 2011Q1

REPORT INFORMATION
  Report Type: 
  Country: None (occurrence: None)
  Receive Date: 20110310
  Receipt Date: 20110302
  Transmission Date: 20110831
  Serious: Yes (Hospitalization)
  Sender: FDA-Public Use
  Company Number: GB-ROCHE-727500

PATIENT
  Sex: Female
  Weight: 93.4 kg

DRUGS (11)
  1. GLICLAZIDE [Concomitant]
     Dosage: DOSING AMOUNT: 80 MG OM, 40 MG ON
     Dates: start: 20040930
  2. ONE-ALPHA [Concomitant]
     Dosage: DRUG: 1-ALPHACALCIDOL. 0.5 UG ON ALTERNATE DAYS, 0.25MCG ON DAYS BETWEEN
     Route: 065
     Dates: start: 20061201
  3. CARVEDILOL [Concomitant]
     Dates: start: 20040930
  4. CYCLOPHOSPHAMIDE [Concomitant]
  5. PREDNISOLONE [Concomitant]
  6. METHOXY POLYETHYLENE GLYCOL-EPOETIN BETA [Suspect]
     Dosage: DOSE FORM: PFS, LAST DOSE PRIOR TO SAE: 03 JUNE 2010
     Route: 058
     Dates: start: 20091126
  7. SODIUM BICARBONATE [Concomitant]
     Route: 048
     Dates: start: 20061201
  8. ATORVASTATIN [Concomitant]
     Route: 048
     Dates: start: 20040930
  9. IRBESARTAN [Concomitant]
     Dates: start: 20040930
  10. FRUSEMIDE [Concomitant]
     Route: 048
     Dates: start: 20040930
  11. PERINDOPRIL ERBUMINE [Concomitant]
     Dosage: ONE HOUR BEFORE BREAKFAST.
     Dates: start: 20100311

REACTIONS (1)
  - RENAL IMPAIRMENT [None]
